FAERS Safety Report 7110386-5 (Version None)
Quarter: 2010Q4

REPORT INFORMATION
  Report Type: 
  Country: None (occurrence: None)
  Receive Date: 20101117
  Receipt Date: 20101117
  Transmission Date: 20110411
  Serious: Yes (Other)
  Sender: FDA-Public Use
  Company Number: None

PATIENT
  Age: 13 Year
  Sex: Female
  Weight: 57.1532 kg

DRUGS (2)
  1. LEVOTHYROXINE SODIUM [Suspect]
     Indication: HYPOTHYROIDISM
  2. LEVOXYL [Suspect]

REACTIONS (3)
  - NAUSEA [None]
  - RASH [None]
  - VOMITING [None]
